FAERS Safety Report 6842771-0 (Version None)
Quarter: 2010Q3

REPORT INFORMATION
  Report Type: 
  Country: None (occurrence: None)
  Receive Date: 20100714
  Receipt Date: 20070901
  Transmission Date: 20110219
  Serious: No
  Sender: FDA-Public Use
  Company Number: US-PFIZER INC-2007064106

PATIENT
  Sex: Female
  Weight: 61.4 kg

DRUGS (1)
  1. CHANTIX [Suspect]
     Indication: SMOKING CESSATION THERAPY
     Route: 048
     Dates: start: 20070702

REACTIONS (7)
  - APHTHOUS STOMATITIS [None]
  - DYSPHONIA [None]
  - GINGIVITIS [None]
  - LIMB INJURY [None]
  - ORAL PAIN [None]
  - OROPHARYNGEAL PAIN [None]
  - PROCEDURAL PAIN [None]
